FAERS Safety Report 8111252-9 (Version None)
Quarter: 2012Q1

REPORT INFORMATION
  Report Type: 
  Country: None (occurrence: None)
  Receive Date: 20120203
  Receipt Date: 20110714
  Transmission Date: 20120608
  Serious: Yes (Life-Threatening, Hospitalization, Other)
  Sender: FDA-Public Use
  Company Number: US-GLAXOSMITHKLINE-A0936966A

PATIENT
  Age: 17 Year
  Sex: Female

DRUGS (2)
  1. ATIVAN [Suspect]
     Route: 065
  2. LAMICTAL [Suspect]
     Indication: BIPOLAR II DISORDER
     Dosage: 50MG PER DAY
     Route: 048

REACTIONS (6)
  - URTICARIA [None]
  - PYREXIA [None]
  - ILL-DEFINED DISORDER [None]
  - INFLUENZA LIKE ILLNESS [None]
  - STEVENS-JOHNSON SYNDROME [None]
  - RASH [None]
